FAERS Safety Report 6655450-X (Version None)
Quarter: 2010Q1

REPORT INFORMATION
  Report Type: 
  Country: None (occurrence: None)
  Receive Date: 20100329
  Receipt Date: 20100322
  Transmission Date: 20100710
  Serious: Yes (Hospitalization)
  Sender: FDA-Public Use
  Company Number: US-ELI_LILLY_AND_COMPANY-US200909002533

PATIENT
  Sex: Male
  Weight: 100.68 kg

DRUGS (16)
  1. PEMETREXED [Suspect]
     Indication: NON-SMALL CELL LUNG CANCER STAGE IV
     Dosage: 500 MG/M2, OTHER
     Route: 042
     Dates: start: 20090812
  2. CARBOPLATIN [Suspect]
     Indication: NON-SMALL CELL LUNG CANCER STAGE IV
     Dosage: 6 D/F, OTHER
     Route: 042
     Dates: start: 20090812
  3. BEVACIZUMAB [Suspect]
     Indication: NON-SMALL CELL LUNG CANCER STAGE IV
     Dosage: 15 MG/KG, OTHER
     Route: 042
     Dates: start: 20090812
  4. IMDUR [Concomitant]
     Dosage: 30 MG, DAILY (1/D)
  5. PAXIL [Concomitant]
     Dosage: 20 MG, DAILY (1/D)
  6. PRINIVIL [Concomitant]
     Dosage: 20 MG, DAILY (1/D)
  7. FOLIC ACID [Concomitant]
     Dosage: 1 MG, DAILY (1/D)
  8. LIPITOR [Concomitant]
     Dosage: 80 MG, DAILY (1/D)
  9. VERAPAMIL [Concomitant]
     Dosage: 240 MG, DAILY (1/D)
  10. PERCOCET [Concomitant]
     Dosage: UNK, AS NEEDED
  11. LASIX [Concomitant]
     Dosage: UNK, QOD
  12. PLAVIX [Concomitant]
     Indication: CORONARY ARTERY DISEASE
     Dosage: 75 MG, DAILY (1/D)
     Route: 048
     Dates: start: 20090826
  13. PREDNISONE TAB [Concomitant]
     Indication: PNEUMONIA
     Dosage: 10 MG, 2/D
     Dates: start: 20090904, end: 20090908
  14. PREDNISONE TAB [Concomitant]
     Dosage: 5 MG, DAILY (1/D)
     Dates: start: 20090909
  15. VITAMIN B-12 [Concomitant]
     Indication: PREMEDICATION
     Dates: start: 20090923
  16. NEULASTA [Concomitant]
     Indication: NEUTROPENIA
     Dates: start: 20090923

REACTIONS (1)
  - DEHYDRATION [None]
